FAERS Safety Report 4752701-3 (Version None)
Quarter: 2005Q3

REPORT INFORMATION
  Report Type: 
  Country: None (occurrence: None)
  Receive Date: 20050823
  Receipt Date: 20050810
  Transmission Date: 20060218
  Serious: Yes (Other)
  Sender: FDA-Public Use
  Company Number: 216835

PATIENT

DRUGS (1)
  1. NUTROPIN AQ [Suspect]

REACTIONS (2)
  - CRANIOPHARYNGIOMA [None]
  - DISEASE RECURRENCE [None]
